FAERS Safety Report 5482931-7 (Version None)
Quarter: 2007Q4

REPORT INFORMATION
  Report Type: 
  Country: None (occurrence: None)
  Receive Date: 20071011
  Receipt Date: 20071001
  Transmission Date: 20080405
  Serious: Yes (Other)
  Sender: FDA-Public Use
  Company Number: US-SANOFI-SYNTHELABO-A03200705848

PATIENT
  Age: 40 Year
  Sex: Female

DRUGS (15)
  1. FOLINIC ACID [Suspect]
     Indication: COLON CANCER STAGE III
     Route: 042
  2. FOLINIC ACID [Suspect]
     Route: 042
  3. FLUOROURACIL [Suspect]
     Indication: COLON CANCER STAGE III
     Route: 040
  4. FLUOROURACIL [Suspect]
     Route: 040
  5. FLUOROURACIL [Suspect]
     Dosage: 2400MG/M2 OVER A 46-HOUR CONTINUOUS INFUSION
     Route: 042
  6. ELOXATIN [Suspect]
     Indication: COLON CANCER STAGE III
     Dosage: 85 MG/M2 INFUSION ON ALTERNATING WEEKS
     Route: 042
  7. METROPROLOL [Concomitant]
     Indication: HYPERTENSION
     Dosage: UNK
     Route: 065
  8. MAGNESIUM SULFATE [Concomitant]
     Indication: DRUG USE FOR UNKNOWN INDICATION
     Dosage: 1GRAM PRE AND POST OXALIPLATIN INFUSION
     Route: 042
  9. DECADRON [Concomitant]
     Indication: DRUG USE FOR UNKNOWN INDICATION
     Route: 042
  10. ONDANSETRON [Concomitant]
     Dosage: 8 MG 30 MIN PRIOR TO OXALIPLATIN
     Route: 042
  11. ONDANSETRON [Concomitant]
     Dosage: 8 MG PRIOR TO FINAL DOSE OF OXALIPLATIN
     Route: 042
  12. DIPHENHYDRAMINE HCL [Concomitant]
     Indication: DRUG USE FOR UNKNOWN INDICATION
     Route: 042
  13. FAMOTIDINE [Concomitant]
     Indication: DRUG USE FOR UNKNOWN INDICATION
     Route: 042
  14. PALONOSETRON [Concomitant]
     Indication: DRUG USE FOR UNKNOWN INDICATION
     Route: 065
  15. CALCIUM GLUCONATE [Concomitant]
     Indication: DRUG USE FOR UNKNOWN INDICATION
     Dosage: 1GRAM PRE AND POST OXALIPLATIN INFUSION
     Route: 042

REACTIONS (18)
  - ABDOMINAL DISTENSION [None]
  - ABDOMINAL PAIN [None]
  - ASTHENIA [None]
  - ATRIAL FIBRILLATION [None]
  - BLINDNESS TRANSIENT [None]
  - CHEST PAIN [None]
  - CONSTIPATION [None]
  - HEADACHE [None]
  - HYPERTENSION [None]
  - MUCOSAL INFLAMMATION [None]
  - NAUSEA [None]
  - NEURALGIA [None]
  - PAIN IN EXTREMITY [None]
  - PALMAR-PLANTAR ERYTHRODYSAESTHESIA SYNDROME [None]
  - PALPITATIONS [None]
  - PHOTOPHOBIA [None]
  - VISUAL DISTURBANCE [None]
  - VOMITING [None]
